FAERS Safety Report 7389252-6 (Version None)
Quarter: 2011Q2

REPORT INFORMATION
  Report Type: 
  Country: None (occurrence: None)
  Receive Date: 20110401
  Receipt Date: 20110325
  Transmission Date: 20111010
  Serious: Yes (Other)
  Sender: FDA-Public Use
  Company Number: CN-BAYER-2011-026087

PATIENT
  Age: 76 Year
  Sex: Female

DRUGS (1)
  1. ASPIRIN [Suspect]
     Dosage: 100 MG, QD
     Dates: start: 20100901

REACTIONS (10)
  - HAEMATOCHEZIA [None]
  - UPPER GASTROINTESTINAL HAEMORRHAGE [None]
  - DYSPEPSIA [None]
  - ABDOMINAL DISCOMFORT [None]
  - PALPITATIONS [None]
  - DIZZINESS [None]
  - ASTHENIA [None]
  - HAEMATEMESIS [None]
  - FEAR [None]
  - TENSION [None]
